FAERS Safety Report 14631007 (Version 2)
Quarter: 2018Q1

REPORT INFORMATION
  Report Type: Spontaneous
  Country: US (occurrence: US)
  Receive Date: 20180313
  Receipt Date: 20180326
  Transmission Date: 20180509
  Serious: No
  Sender: FDA-Public Use
  Company Number: US-BIOGEN-2018BI00538134

PATIENT
  Sex: Female

DRUGS (1)
  1. AVONEX [Suspect]
     Active Substance: INTERFERON BETA-1A
     Indication: MULTIPLE SCLEROSIS
     Route: 065
     Dates: start: 20130612

REACTIONS (5)
  - Memory impairment [Unknown]
  - Chest pain [Not Recovered/Not Resolved]
  - Hypoacusis [Unknown]
  - Scar [Recovered/Resolved]
  - Rash [Recovered/Resolved]
